FAERS Safety Report 9302582 (Version 1)
Quarter: 2013Q2

REPORT INFORMATION
  Report Type: Spontaneous
  Country: DE (occurrence: None)
  Receive Date: 20130517
  Receipt Date: 20130517
  Transmission Date: 20140414
  Serious: Yes (Other)
  Sender: FDA-Public Use
  Company Number: 1305-631

PATIENT
  Sex: Female

DRUGS (1)
  1. EYLEA [Suspect]
     Dates: start: 20130312

REACTIONS (1)
  - Transient ischaemic attack [None]
